FAERS Safety Report 11516743 (Version 1)
Quarter: 2015Q3

REPORT INFORMATION
  Report Type: Spontaneous
  Country: GB (occurrence: GB)
  Receive Date: 20150917
  Receipt Date: 20150917
  Transmission Date: 20151125
  Serious: Yes (Hospitalization)
  Sender: FDA-Public Use
  Company Number: GB-TEVA-592487ACC

PATIENT
  Age: 75 Year

DRUGS (18)
  1. BENDROFLUMETHIAZIDE [Concomitant]
     Active Substance: BENDROFLUMETHIAZIDE
     Dosage: 2.5 MILLIGRAM DAILY; AT NIGHT
  2. BISACODYL. [Concomitant]
     Active Substance: BISACODYL
  3. SOLIFENACIN [Concomitant]
     Active Substance: SOLIFENACIN
     Dosage: 5 MILLIGRAM DAILY; IN MORNING
     Dates: end: 20150721
  4. ALENDRONIC ACID [Suspect]
     Active Substance: ALENDRONIC ACID
     Dosage: LONG TERM
  5. DOXAZOSIN [Concomitant]
     Active Substance: DOXAZOSIN\DOXAZOSIN MESYLATE
     Dosage: 8 MILLIGRAM DAILY; IN MORNING
  6. ORAMORPH [Concomitant]
     Active Substance: MORPHINE SULFATE
  7. PARACETAMOL [Concomitant]
     Active Substance: ACETAMINOPHEN
     Dosage: 4 TIMES A DAY AS REQUIRED
  8. SIMVASTATIN. [Concomitant]
     Active Substance: SIMVASTATIN
     Dosage: 20 MILLIGRAM DAILY; AT NIGHT
  9. PEPTAC PEPPERMINT LIQUID [Concomitant]
     Active Substance: CALCIUM CARBONATE\SODIUM ALGINATE\SODIUM BICARBONATE
     Dosage: 4 TIMES A DAY AS REQUIRED
  10. AMLODIPINE [Concomitant]
     Active Substance: AMLODIPINE BESYLATE
     Dosage: 10 MILLIGRAM DAILY;
  11. RAMIPRIL. [Concomitant]
     Active Substance: RAMIPRIL
     Dosage: 10 MILLIGRAM DAILY;
  12. TRAMADOL. [Concomitant]
     Active Substance: TRAMADOL
     Dosage: STOPPED
  13. TRAVOPROST [Concomitant]
     Active Substance: TRAVOPROST
     Dosage: 1 DROP ON EACH EYE
  14. SENNA [Concomitant]
     Active Substance: SENNA LEAF\SENNOSIDES\SENNOSIDES A AND B
     Dosage: AT NIGHT
  15. ADCAL-D3 [Concomitant]
     Active Substance: CALCIUM CARBONATE\CHOLECALCIFEROL
     Dosage: 2 DOSAGE FORMS DAILY;
  16. DOCUSATE [Concomitant]
     Active Substance: DOCUSATE
     Dosage: 500 MILLIGRAM DAILY;
  17. DULOXETINE. [Concomitant]
     Active Substance: DULOXETINE
     Dates: end: 20150721
  18. LANSOPRAZOLE. [Concomitant]
     Active Substance: LANSOPRAZOLE
     Dosage: 15 MILLIGRAM DAILY; IN MORNING

REACTIONS (2)
  - Atypical femur fracture [Recovering/Resolving]
  - Fall [Unknown]

NARRATIVE: CASE EVENT DATE: 20150810
